FAERS Safety Report 20411991 (Version 1)
Quarter: 2022Q1

REPORT INFORMATION
  Report Type: 
  Country: None (occurrence: None)
  Receive Date: 20220201
  Receipt Date: 20220201
  Transmission Date: 20220423
  Serious: No
  Sender: FDA-Public Use
  Company Number: None

PATIENT
  Sex: Female

DRUGS (1)
  1. AZASITE [Suspect]
     Active Substance: AZITHROMYCIN MONOHYDRATE

REACTIONS (7)
  - Eye pruritus [Unknown]
  - Eye pain [Unknown]
  - Eye swelling [Unknown]
  - Vision blurred [Unknown]
  - Bone pain [Unknown]
  - Thinking abnormal [Unknown]
  - Nasal congestion [Unknown]
